FAERS Safety Report 9705575 (Version 1)
Quarter: 2013Q4

REPORT INFORMATION
  Report Type: Spontaneous
  Country: US (occurrence: US)
  Receive Date: 20131122
  Receipt Date: 20131122
  Transmission Date: 20140711
  Serious: No
  Sender: FDA-Public Use
  Company Number: US-GILEAD-2008-0016965

PATIENT
  Sex: Female

DRUGS (10)
  1. LETAIRIS [Suspect]
     Indication: PULMONARY ARTERIAL HYPERTENSION
     Route: 048
     Dates: start: 20080220
  2. LEVOTHYROXIN [Concomitant]
     Route: 048
  3. HCTZ/TRIAMT [Concomitant]
     Route: 048
  4. JANUVIA [Concomitant]
     Route: 048
  5. K-DUR [Concomitant]
     Route: 048
  6. ELAVIL [Concomitant]
     Route: 048
  7. SOMA [Concomitant]
     Route: 048
  8. ZANTAC [Concomitant]
     Route: 048
  9. ZINC [Concomitant]
     Route: 048
  10. CENTRUM [Concomitant]
     Route: 048

REACTIONS (1)
  - Headache [Unknown]
